FAERS Safety Report 23408451 (Version 1)
Quarter: 2024Q1

REPORT INFORMATION
  Report Type: Spontaneous
  Country: GB (occurrence: GB)
  Receive Date: 20240117
  Receipt Date: 20240117
  Transmission Date: 20240410
  Serious: Yes (Other)
  Sender: FDA-Public Use
  Company Number: GB-OPELLA-2024OHG001348

PATIENT
  Sex: Male

DRUGS (1)
  1. DULCOLAX STIMULANT LAXATIVE [Suspect]
     Active Substance: BISACODYL
     Indication: Product used for unknown indication

REACTIONS (2)
  - Drug dependence [Unknown]
  - Incorrect product administration duration [Unknown]
